FAERS Safety Report 6509078-2 (Version None)
Quarter: 2009Q4

REPORT INFORMATION
  Report Type: 
  Country: None (occurrence: None)
  Receive Date: 20091218
  Receipt Date: 20091218
  Transmission Date: 20100525
  Serious: Yes (Other)
  Sender: FDA-Public Use
  Company Number: None

PATIENT
  Age: 50 Year
  Sex: Female
  Weight: 48.5349 kg

DRUGS (1)
  1. BONIVA [Suspect]

REACTIONS (1)
  - VENTRICULAR EXTRASYSTOLES [None]
